FAERS Safety Report 5641892-8 (Version None)
Quarter: 2008Q1

REPORT INFORMATION
  Report Type: 
  Country: None (occurrence: None)
  Receive Date: 20080227
  Receipt Date: 20080220
  Transmission Date: 20080703
  Serious: Yes (Hospitalization)
  Sender: FDA-Public Use
  Company Number: US-BOEHRINGER INGELHEIM GMBH, GERMANY-2008-BP-01198RO

PATIENT
  Sex: Female
  Weight: 56 kg

DRUGS (14)
  1. PREDNISONE TAB [Suspect]
     Indication: CROHN'S DISEASE
     Dates: start: 20020101
  2. KLONOPIN [Concomitant]
     Indication: ANXIETY
  3. VALIUM [Concomitant]
     Indication: ANXIETY
  4. DOXEPIN HCL [Concomitant]
     Indication: ANTIDEPRESSANT THERAPY
  5. PREVACID [Concomitant]
     Indication: GASTROOESOPHAGEAL REFLUX DISEASE
  6. ATENOLOL [Concomitant]
     Indication: CARDIAC DISORDER
  7. PARAGORIC [Concomitant]
     Indication: DIARRHOEA
  8. ALBUTEROL [Concomitant]
     Indication: EMPHYSEMA
  9. SPIRIVA [Concomitant]
     Indication: EMPHYSEMA
  10. ASMANEX TWISTHALER [Concomitant]
     Indication: EMPHYSEMA
  11. NASACORT [Concomitant]
     Indication: SINUSITIS
  12. BONIVA [Concomitant]
     Indication: OSTEOPOROSIS
     Route: 042
  13. VYTORIN [Concomitant]
     Indication: BLOOD CHOLESTEROL
  14. HYDROCORTISONE [Concomitant]
     Indication: CROHN'S DISEASE
     Dates: start: 20040101

REACTIONS (3)
  - RESPIRATORY TRACT INFECTION [None]
  - TYPE 2 DIABETES MELLITUS [None]
  - URINE ANALYSIS ABNORMAL [None]
